FAERS Safety Report 24787196 (Version 1)
Quarter: 2024Q4

REPORT INFORMATION
  Report Type: Spontaneous
  Country: US (occurrence: US)
  Receive Date: 20241230
  Receipt Date: 20241230
  Transmission Date: 20250114
  Serious: No
  Sender: DR REDDYS
  Company Number: US-DRL-USA-SPO/USA/24/0018825

PATIENT
  Sex: Female

DRUGS (1)
  1. CIPROFLOXACIN\DEXAMETHASONE [Suspect]
     Active Substance: CIPROFLOXACIN\DEXAMETHASONE
     Indication: Product used for unknown indication
     Dosage: CIPROFLOXACIN AND DEXAMETHASONE OTIC SUSPENSION 0.3% AND 0.1%?7.5 ML FILL IN 10 ML BOTTLE
     Route: 001
     Dates: end: 20241217

REACTIONS (1)
  - Incorrect route of product administration [Unknown]
